FAERS Safety Report 4545108-5 (Version None)
Quarter: 2005Q1

REPORT INFORMATION
  Report Type: 
  Country: None (occurrence: None)
  Receive Date: 20050105
  Receipt Date: 20041209
  Transmission Date: 20050727
  Serious: Yes (Other)
  Sender: FDA-Public Use
  Company Number: PHEH2004US13208

PATIENT
  Age: 4 Year
  Sex: Male

DRUGS (16)
  1. DILANTIN [Concomitant]
     Indication: GRAND MAL CONVULSION
     Dosage: 100 MG, TID
  2. PHENOBARBITAL TAB [Concomitant]
     Indication: GRAND MAL CONVULSION
     Dosage: 60 MG 4 AM AND 8 PM AND 30 MG AT NOON
  3. PREVACID [Suspect]
     Indication: DYSPEPSIA
     Dosage: 30 MG, BID
  4. PREVACID [Suspect]
     Dosage: 30 MG, TID
     Route: 048
  5. TEGRETOL [Suspect]
     Indication: GRAND MAL CONVULSION
     Dosage: 400 MG, TID
     Route: 048
     Dates: start: 20040510
  6. FLOVENT [Concomitant]
     Dosage: 2 PUFFS Q12H
  7. ALBUTEROL [Concomitant]
     Dosage: Q4H PRN
  8. IMMUNE GLOBULIN INTRAVENOUS (HUMAN) [Concomitant]
     Dosage: 15 G, QMO
  9. PHYSIOTHERAPY [Concomitant]
  10. CLONAZEPAM [Concomitant]
  11. ZANTAC [Concomitant]
     Dosage: 37.5 MG, Q12H
  12. ZANTAC [Concomitant]
     Dosage: 37.5 MG, Q12H
  13. VITAMIN E [Concomitant]
     Dosage: 400 IU, Q12H
  14. POLY-VI-SOL [Concomitant]
     Dosage: 2 DROPERS QHS
  15. FOLIC ACID [Concomitant]
     Dosage: 1 MG, QD
  16. ASCORBIC ACID [Concomitant]
     Dosage: 250 MG, QD

REACTIONS (15)
  - ALANINE AMINOTRANSFERASE INCREASED [None]
  - ANTICONVULSANT DRUG LEVEL ABOVE THERAPEUTIC [None]
  - ANTICONVULSANT DRUG LEVEL BELOW THERAPEUTIC [None]
  - ANTICONVULSANT DRUG LEVEL DECREASED [None]
  - APNOEA [None]
  - DRUG INTERACTION [None]
  - EYE MOVEMENT DISORDER [None]
  - GASTRIC PH INCREASED [None]
  - GAZE PALSY [None]
  - GRAND MAL CONVULSION [None]
  - HAEMATOCRIT DECREASED [None]
  - MUSCULOSKELETAL STIFFNESS [None]
  - OXYGEN SATURATION DECREASED [None]
  - PLATELET COUNT INCREASED [None]
  - RED BLOOD CELL COUNT DECREASED [None]
